FAERS Safety Report 6218358-X (Version None)
Quarter: 2009Q2

REPORT INFORMATION
  Report Type: 
  Country: None (occurrence: None)
  Receive Date: 20090608
  Receipt Date: 20090603
  Transmission Date: 20091009
  Serious: Yes (Hospitalization)
  Sender: FDA-Public Use
  Company Number: A0788583A

PATIENT
  Age: 81 Year
  Sex: Male

DRUGS (6)
  1. FLUARIX [Suspect]
     Indication: PROPHYLAXIS
     Route: 065
     Dates: start: 20080101, end: 20080101
  2. ADVAIR HFA [Suspect]
     Indication: CHRONIC OBSTRUCTIVE PULMONARY DISEASE
     Route: 055
     Dates: start: 20070101
  3. LISINOPRIL [Concomitant]
  4. WARFARIN SODIUM [Concomitant]
  5. DILTIAZEM [Concomitant]
  6. PNEUMONIA VACCINE [Concomitant]
     Indication: PROPHYLAXIS
     Route: 065
     Dates: start: 20080101, end: 20080101

REACTIONS (2)
  - PNEUMONIA [None]
  - RHINORRHOEA [None]
